FAERS Safety Report 6846643-7 (Version None)
Quarter: 2010Q3

REPORT INFORMATION
  Report Type: 
  Country: None (occurrence: None)
  Receive Date: 20100715
  Receipt Date: 20070919
  Transmission Date: 20110219
  Serious: No
  Sender: FDA-Public Use
  Company Number: US-PFIZER INC-2007078873

PATIENT
  Sex: Female
  Weight: 59.1 kg

DRUGS (6)
  1. CHANTIX [Suspect]
     Indication: SMOKING CESSATION THERAPY
     Route: 048
     Dates: start: 20070906
  2. LAMICTAL [Concomitant]
  3. SEROQUEL [Concomitant]
  4. TOPAMAX [Concomitant]
     Indication: MIGRAINE
  5. LO/OVRAL [Concomitant]
  6. BUSPAR [Concomitant]
     Indication: ANXIETY

REACTIONS (3)
  - DRUG INEFFECTIVE [None]
  - FATIGUE [None]
  - NAUSEA [None]
